FAERS Safety Report 5897712-X (Version None)
Quarter: 2008Q3

REPORT INFORMATION
  Report Type: 
  Country: None (occurrence: None)
  Receive Date: 20080925
  Receipt Date: 20080915
  Transmission Date: 20090109
  Serious: Yes (Other)
  Sender: FDA-Public Use
  Company Number: PHHY2008AU13024

PATIENT
  Sex: Female

DRUGS (2)
  1. FEMARA [Suspect]
     Indication: BREAST CANCER
     Dosage: 2.5 MG/DAILY
     Route: 048
     Dates: start: 20080513
  2. FEMARA [Suspect]
     Dosage: 1.25 MG/DAILY

REACTIONS (3)
  - ANXIETY [None]
  - BASEDOW'S DISEASE [None]
  - THYROID FUNCTION TEST ABNORMAL [None]
